FAERS Safety Report 18598507 (Version 1)
Quarter: 2020Q4

REPORT INFORMATION
  Report Type: Spontaneous
  Country: US (occurrence: US)
  Receive Date: 20201210
  Receipt Date: 20201210
  Transmission Date: 20210114
  Serious: Yes (Hospitalization, Other)
  Sender: FDA-Public Use
  Company Number: US-LUPIN PHARMACEUTICALS INC.-2020-10206

PATIENT

DRUGS (23)
  1. FOLLISTIM [Suspect]
     Active Substance: FOLLITROPIN
     Indication: INFERTILITY
     Dosage: UNK
     Route: 064
     Dates: start: 201809
  2. MAGNESIUM [Suspect]
     Active Substance: MAGNESIUM
     Indication: PRODUCT USED FOR UNKNOWN INDICATION
     Dosage: UNK
     Route: 064
  3. PROGESTERONE. [Suspect]
     Active Substance: PROGESTERONE
     Dosage: UNK (SUPPOSITORY)
     Route: 064
  4. ESTRADIOL. [Suspect]
     Active Substance: ESTRADIOL
     Indication: INFERTILITY
     Dosage: UNK
     Route: 064
     Dates: start: 201810
  5. CITALOPRAM [Suspect]
     Active Substance: CITALOPRAM HYDROBROMIDE
     Indication: PRODUCT USED FOR UNKNOWN INDICATION
     Dosage: UNK
     Route: 064
  6. VENLAFAXINE [Suspect]
     Active Substance: VENLAFAXINE HYDROCHLORIDE
     Indication: PRODUCT USED FOR UNKNOWN INDICATION
     Dosage: UNK
     Route: 064
  7. FSH [Suspect]
     Active Substance: FOLLITROPIN
     Indication: INFERTILITY
     Dosage: UNK
     Route: 064
     Dates: start: 201809
  8. ENOXAPARIN [Suspect]
     Active Substance: ENOXAPARIN
     Indication: THROMBOSIS PROPHYLAXIS
     Dosage: UNK, QD
     Route: 064
  9. BROMOCRIPTINE [Suspect]
     Active Substance: BROMOCRIPTINE
     Dosage: 10 MILLIGRAM, BID
     Route: 064
  10. MENOPUR [Suspect]
     Active Substance: FOLLITROPIN\LUTEINIZING HORMONE
     Indication: INFERTILITY
     Dosage: UNK
     Route: 064
     Dates: start: 201809
  11. HYDROMORPHONE [Suspect]
     Active Substance: HYDROMORPHONE
     Indication: BREAST PAIN
     Dosage: UNK
     Route: 064
  12. BETAMETHASONE. [Suspect]
     Active Substance: BETAMETHASONE
     Indication: DRUG THERAPY
     Dosage: UNK
     Route: 064
  13. PROGESTERONE. [Suspect]
     Active Substance: PROGESTERONE
     Indication: INFERTILITY
     Dosage: UNK
     Route: 064
     Dates: start: 20181118
  14. BROMOCRIPTINE [Suspect]
     Active Substance: BROMOCRIPTINE
     Indication: BREAST ENLARGEMENT
     Dosage: 2.5 MILLIGRAM, BID
     Route: 064
  15. METHADONE [Suspect]
     Active Substance: METHADONE HYDROCHLORIDE
     Indication: BREAST PAIN
     Dosage: UNK
     Route: 064
  16. TYLENOL [Suspect]
     Active Substance: ACETAMINOPHEN
     Indication: BREAST PAIN
     Dosage: UNK
     Route: 064
  17. OXYCODONE HYDROCHLORIDE. [Suspect]
     Active Substance: OXYCODONE HYDROCHLORIDE
     Indication: BREAST PAIN
     Dosage: UNK
     Route: 064
  18. BROMOCRIPTINE [Suspect]
     Active Substance: BROMOCRIPTINE
     Dosage: 5 MILLIGRAM, BID
     Route: 064
  19. CABERGOLINE. [Suspect]
     Active Substance: CABERGOLINE
     Indication: BREAST ENLARGEMENT
     Dosage: 0.5 MILLIGRAM, UNK
     Route: 064
  20. METHADONE [Suspect]
     Active Substance: METHADONE HYDROCHLORIDE
     Dosage: 30 MILLIGRAM, BID
     Route: 064
  21. GANIRELIX [Suspect]
     Active Substance: GANIRELIX
     Indication: INFERTILITY
     Dosage: UNK
     Route: 064
     Dates: start: 201809
  22. IRON [Suspect]
     Active Substance: IRON
     Indication: DRUG THERAPY
     Dosage: UNK (INTRAVENOUS INFUSION)
     Route: 064
  23. LETROZOLE. [Concomitant]
     Active Substance: LETROZOLE
     Indication: DRUG THERAPY
     Dosage: 2.5 MILLIGRAM, UNK
     Route: 065
     Dates: start: 20180322

REACTIONS (4)
  - Neonatal respiratory distress syndrome [Unknown]
  - Necrotising enterocolitis neonatal [Unknown]
  - Premature baby [Unknown]
  - Foetal exposure during pregnancy [Unknown]
